FAERS Safety Report 6766731-3 (Version None)
Quarter: 2010Q2

REPORT INFORMATION
  Report Type: 
  Country: None (occurrence: None)
  Receive Date: 20100611
  Receipt Date: 20100607
  Transmission Date: 20101027
  Serious: Yes (Hospitalization, Other)
  Sender: FDA-Public Use
  Company Number: US-ELI_LILLY_AND_COMPANY-US200910006663

PATIENT
  Sex: Female
  Weight: 132.88 kg

DRUGS (15)
  1. BYETTA [Suspect]
     Dosage: 5 UG, 2/D
     Dates: start: 20070901, end: 20080101
  2. BYETTA [Suspect]
     Dosage: 10 UG, 2/D
  3. EFFEXOR [Concomitant]
     Indication: DEPRESSION
     Dates: start: 20060101, end: 20081001
  4. DIAZEPAM [Concomitant]
     Indication: ANXIETY
     Dates: start: 20070901
  5. CYMBALTA [Concomitant]
     Indication: DEPRESSION
     Dates: start: 20071001, end: 20081001
  6. ACTOS [Concomitant]
     Indication: TYPE 2 DIABETES MELLITUS
     Dates: start: 20070901, end: 20080101
  7. METFORMIN [Concomitant]
     Indication: TYPE 2 DIABETES MELLITUS
     Dates: start: 20080101
  8. NEXIUM [Concomitant]
     Indication: GASTROOESOPHAGEAL REFLUX DISEASE
     Dates: start: 20070801
  9. ERYTHROMYCIN [Concomitant]
     Indication: RESPIRATORY TRACT INFECTION
     Dates: start: 20080101
  10. HYZAAR [Concomitant]
     Indication: HYPERTENSION
     Dates: start: 20031001, end: 20090301
  11. LORTAB [Concomitant]
  12. METHADONE HCL [Concomitant]
     Dosage: 10 MEQ, UNK
  13. RESTORIL [Concomitant]
     Dosage: 15 MG, UNK
  14. PRILOSEC [Concomitant]
     Dosage: 40 MG, DAILY (1/D)
  15. WELLBUTRIN [Concomitant]
     Dosage: 100 MG, 2/D
     Route: 048

REACTIONS (2)
  - HEPATITIS C [None]
  - PANCREATITIS ACUTE [None]
